FAERS Safety Report 9604288 (Version 4)
Quarter: 2014Q1

REPORT INFORMATION
  Report Type: Spontaneous
  Country: HU (occurrence: HU)
  Receive Date: 20131008
  Receipt Date: 20140219
  Transmission Date: 20141002
  Serious: Yes (Death, Hospitalization)
  Sender: FDA-Public Use
  Company Number: PHHY2013HU111140

PATIENT
  Age: 31 Year
  Sex: Female

DRUGS (2)
  1. SANDIMMUN [Suspect]
     Indication: RENAL TRANSPLANT
  2. MEDROL [Suspect]
     Indication: RENAL TRANSPLANT

REACTIONS (6)
  - Aortic aneurysm [Fatal]
  - Palatal disorder [Recovered/Resolved]
  - Gingival hyperplasia [Recovered/Resolved]
  - Malocclusion [Recovering/Resolving]
  - Gingival bleeding [Recovered/Resolved]
  - Gingival hypertrophy [Recovered/Resolved]
